FAERS Safety Report 6753681-1 (Version None)
Quarter: 2010Q2

REPORT INFORMATION
  Report Type: 
  Country: None (occurrence: None)
  Receive Date: 20100601
  Receipt Date: 20080428
  Transmission Date: 20101027
  Serious: Yes (Other)
  Sender: FDA-Public Use
  Company Number: 2009-3418

PATIENT
  Age: 79 Year
  Sex: Male

DRUGS (19)
  1. APOKYN [Suspect]
     Indication: PARKINSON'S DISEASE
     Dosage: 0.3 ML 1 TO 5 TIMES DAILY (0.3 ML, 1 TO 5 TIMES DAILY), SUBCUTANEOUS
     Route: 058
     Dates: start: 20050902
  2. MOBIC [Concomitant]
  3. OMEPRAZOLE [Concomitant]
  4. ARICEPT [Concomitant]
  5. TASMAR (TOLCAPONE) (TOLCAPONE) [Concomitant]
  6. OXYCODONE HCL [Concomitant]
  7. DESMOPRESSIN ACETATE (DESMOPRESSIN ACETATE) (DESMOPRESSIN ACETATE) [Concomitant]
  8. GLUCOSAMINE W/CHONDROITIN (GLUCOSAMINE W/CHONDROITIN) (CHONDROITIN SUL [Concomitant]
  9. DOCUSATE CALCIUM (DOCUSATE CALCIUM) (DOCUSATE CALCIUM) [Concomitant]
  10. SELEGILINE (SELEGILINE) (SELEGILINE) [Concomitant]
  11. MIRAPEX (PRAMIPEXOLE DIHYDROCHLORIDE) (PRAMIPEXOLE DIHYDROCHLORIDE) [Concomitant]
  12. DIOVAN [Concomitant]
  13. HYDROXYZ (HYDROXYZINE HYDROCHLORIDE) (HYDROXYZINE HYDROCHLORIDE) [Concomitant]
  14. AXID (NIZATIDINE) (NIZATIDINE) [Concomitant]
  15. OXYBUTYNIN (OXYBUTYNIN) (OXYBUTYNIN) [Concomitant]
  16. GLYCOLAX (MACROGOL) (MACROGOL) [Concomitant]
  17. MULTIVITAMINS (MULTIVITAMINS) (VITAMINS NOS) [Concomitant]
  18. ACTONEL (RISEDRONATE SODIUM) (RISEDRONATE SODIUM) [Concomitant]
  19. SINEMET 25/250 (SINEMET) CARBIDOPA, LEVODOPA) [Concomitant]

REACTIONS (1)
  - INGUINAL HERNIA [None]
